FAERS Safety Report 4784542-5 (Version None)
Quarter: 2005Q3

REPORT INFORMATION
  Report Type: 
  Country: None (occurrence: None)
  Receive Date: 20050930
  Receipt Date: 20050921
  Transmission Date: 20060218
  Serious: Yes (Hospitalization)
  Sender: FDA-Public Use
  Company Number: FR-JNJFOC-20050905213

PATIENT
  Age: 74 Year
  Sex: Male

DRUGS (5)
  1. DURAGESIC-100 [Suspect]
     Indication: PELVIC PAIN
     Route: 062
  2. SKENAN [Suspect]
     Indication: DRUG USE FOR UNKNOWN INDICATION
     Route: 048
  3. MORPHINE SULFATE [Suspect]
     Indication: DRUG USE FOR UNKNOWN INDICATION
     Route: 048
  4. ESTRACYT [Concomitant]
     Route: 065
  5. NOVOMIX [Concomitant]
     Indication: DIABETES MELLITUS
     Route: 065

REACTIONS (4)
  - CONFUSIONAL STATE [None]
  - DELUSION [None]
  - FALL [None]
  - HALLUCINATION [None]
